FAERS Safety Report 20773386 (Version 1)
Quarter: 2022Q2

REPORT INFORMATION
  Report Type: Spontaneous
  Country: ES (occurrence: ES)
  Receive Date: 20220502
  Receipt Date: 20220502
  Transmission Date: 20220720
  Serious: Yes (Death, Hospitalization, Other)
  Sender: FDA-Public Use
  Company Number: None

PATIENT
  Age: 68 Year
  Sex: Female

DRUGS (1)
  1. KEVZARA [Suspect]
     Active Substance: SARILUMAB
     Indication: Rheumatoid arthritis
     Dosage: 150MG / 2 WEEKS
     Route: 058
     Dates: start: 20210813

REACTIONS (2)
  - Polycythaemia vera [Fatal]
  - Pneumonia [Fatal]

NARRATIVE: CASE EVENT DATE: 20220121
